FAERS Safety Report 9272730 (Version 3)
Quarter: 2015Q2

REPORT INFORMATION
  Report Type: Spontaneous
  Country: US (occurrence: US)
  Receive Date: 20130506
  Receipt Date: 20150414
  Transmission Date: 20150821
  Serious: Yes (Disabling)
  Sender: FDA-Public Use
  Company Number: US-009507513-1305USA001549

PATIENT
  Sex: Male
  Weight: 92.88 kg

DRUGS (1)
  1. PROPECIA [Suspect]
     Active Substance: FINASTERIDE
     Indication: ALOPECIA
     Dosage: 1 MG, QD
     Route: 048
     Dates: start: 2003, end: 20130410

REACTIONS (14)
  - Erectile dysfunction [Not Recovered/Not Resolved]
  - Hypercholesterolaemia [Unknown]
  - Gastrooesophageal reflux disease [Unknown]
  - Abdominal pain upper [Unknown]
  - Headache [Unknown]
  - Depression [Not Recovered/Not Resolved]
  - Back injury [Unknown]
  - Anxiety [Not Recovered/Not Resolved]
  - Sexual dysfunction [Not Recovered/Not Resolved]
  - Cognitive disorder [Not Recovered/Not Resolved]
  - Hyperlipidaemia [Unknown]
  - Herpes simplex [Unknown]
  - Epicondylitis [Unknown]
  - Libido decreased [Unknown]

NARRATIVE: CASE EVENT DATE: 2003
